FAERS Safety Report 8031007 (Version 9)
Quarter: 2016Q1

REPORT INFORMATION
  Report Type: Spontaneous
  Country: US (occurrence: US)
  Receive Date: 20110712
  Receipt Date: 20160310
  Transmission Date: 20160526
  Serious: Yes (Hospitalization, Other)
  Sender: FDA-Public Use
  Company Number: US-GLAXOSMITHKLINE-A0936220A

PATIENT
  Age: 55 Year
  Sex: Female
  Weight: 95.5 kg

DRUGS (1)
  1. AVANDIA [Suspect]
     Active Substance: ROSIGLITAZONE MALEATE
     Indication: TYPE 2 DIABETES MELLITUS
     Dosage: 8 MG, 1D
     Route: 048
     Dates: start: 20000614, end: 20070815

REACTIONS (15)
  - Cardiomyopathy [Unknown]
  - Coronary artery disease [Unknown]
  - Angina pectoris [Not Recovered/Not Resolved]
  - Myocardial infarction [Unknown]
  - Tricuspid valve incompetence [Unknown]
  - Ischaemia [Unknown]
  - Peripheral venous disease [Unknown]
  - Oedema peripheral [Unknown]
  - Mitral valve incompetence [Unknown]
  - Pain in extremity [Unknown]
  - Gait disturbance [Unknown]
  - Peripheral arterial occlusive disease [Unknown]
  - Sinus bradycardia [Unknown]
  - Left ventricular hypertrophy [Unknown]
  - Dizziness [Unknown]

NARRATIVE: CASE EVENT DATE: 20030506
